FAERS Safety Report 8243858-0 (Version None)
Quarter: 2012Q1

REPORT INFORMATION
  Report Type: 
  Country: None (occurrence: None)
  Receive Date: 20120329
  Receipt Date: 20110202
  Transmission Date: 20120608
  Serious: No
  Sender: FDA-Public Use
  Company Number: US-MYLANLABS-2011S1002461

PATIENT
  Sex: Male

DRUGS (1)
  1. ESTRADIOL [Suspect]
     Route: 062
     Dates: start: 20110128, end: 20110128

REACTIONS (2)
  - NO ADVERSE EVENT [None]
  - ACCIDENTAL EXPOSURE [None]
